FAERS Safety Report 5302880-4 (Version None)
Quarter: 2007Q2

REPORT INFORMATION
  Report Type: 
  Country: None (occurrence: None)
  Receive Date: 20070420
  Receipt Date: 20070411
  Transmission Date: 20071010
  Serious: Yes (Other)
  Sender: FDA-Public Use
  Company Number: US-JNJFOC-20070402692

PATIENT
  Sex: Female
  Weight: 86.18 kg

DRUGS (6)
  1. REMICADE [Suspect]
     Route: 042
  2. REMICADE [Suspect]
     Route: 042
  3. REMICADE [Suspect]
     Indication: PSORIATIC ARTHROPATHY
     Route: 042
  4. MOBIC [Concomitant]
     Indication: ANTIINFLAMMATORY THERAPY
  5. TYLENOL [Concomitant]
     Indication: PREMEDICATION
  6. CLARITIN [Concomitant]
     Indication: PREMEDICATION

REACTIONS (7)
  - BLOOD PRESSURE DECREASED [None]
  - CHEST DISCOMFORT [None]
  - DOUBLE STRANDED DNA ANTIBODY [None]
  - DYSPNOEA [None]
  - INFUSION RELATED REACTION [None]
  - PARAESTHESIA [None]
  - SYSTEMIC LUPUS ERYTHEMATOSUS RASH [None]
